FAERS Safety Report 7463615-2 (Version None)
Quarter: 2011Q2

REPORT INFORMATION
  Report Type: 
  Country: None (occurrence: None)
  Receive Date: 20110506
  Receipt Date: 20110503
  Transmission Date: 20111010
  Serious: Yes (Life-Threatening)
  Sender: FDA-Public Use
  Company Number: DE-ELI_LILLY_AND_COMPANY-DE201012006446

PATIENT
  Sex: Female
  Weight: 22 kg

DRUGS (1)
  1. SOMATROPIN RDNA [Suspect]
     Indication: GROWTH HORMONE DEFICIENCY
     Dosage: 0.65 MG, UNK
     Dates: start: 20070827, end: 20090408

REACTIONS (1)
  - SLEEP APNOEA SYNDROME [None]
